FAERS Safety Report 5660378-8 (Version None)
Quarter: 2008Q1

REPORT INFORMATION
  Report Type: 
  Country: None (occurrence: None)
  Receive Date: 20080311
  Receipt Date: 20071004
  Transmission Date: 20080703
  Serious: No
  Sender: FDA-Public Use
  Company Number: US-BAYER-200713256BCC

PATIENT
  Age: 67 Year
  Sex: Male
  Weight: 104 kg

DRUGS (4)
  1. ALEVE [Suspect]
     Indication: DRUG USE FOR UNKNOWN INDICATION
     Dosage: UNIT DOSE: 220 MG
     Route: 048
  2. ENBREL [Concomitant]
  3. MEDICATION FOR THYROID [Concomitant]
  4. NATURE'S PLUS [Concomitant]

REACTIONS (1)
  - BLISTER [None]
